FAERS Safety Report 18661123 (Version 1)
Quarter: 2020Q4

REPORT INFORMATION
  Report Type: Spontaneous
  Country: US (occurrence: US)
  Receive Date: 20201224
  Receipt Date: 20201224
  Transmission Date: 20210114
  Serious: No
  Sender: FDA-Public Use
  Company Number: None

PATIENT
  Age: 45 Year
  Sex: Male
  Weight: 116.1 kg

DRUGS (17)
  1. BENZTROPINE. [Concomitant]
     Active Substance: BENZTROPINE
  2. MULTIVITAMIN [Concomitant]
     Active Substance: VITAMINS
  3. LISINOPRIL. [Concomitant]
     Active Substance: LISINOPRIL
  4. EPINEPHRINE. [Concomitant]
     Active Substance: EPINEPHRINE
  5. ACETAMINOPHEN EXTRA STRENGTH [Concomitant]
     Active Substance: ACETAMINOPHEN
  6. ASPIRIN. [Concomitant]
     Active Substance: ASPIRIN
  7. NYSTATIN. [Concomitant]
     Active Substance: NYSTATIN
  8. TRIAMCINOLONE [Concomitant]
     Active Substance: TRIAMCINOLONE
  9. VALACYCLOVIR [Concomitant]
     Active Substance: VALACYCLOVIR HYDROCHLORIDE
  10. PENICILLIN G PROCAINE. [Concomitant]
     Active Substance: PENICILLIN G PROCAINE
  11. LITHIUM CARBONATE. [Concomitant]
     Active Substance: LITHIUM CARBONATE
  12. METFORMIN [Concomitant]
     Active Substance: METFORMIN HYDROCHLORIDE
  13. SENNA LAXATIVE [Concomitant]
     Active Substance: SENNOSIDES
  14. NINLARO [Suspect]
     Active Substance: IXAZOMIB CITRATE
     Indication: PLASMA CELL MYELOMA
     Dosage: ?          OTHER FREQUENCY:WEEKLY;?
     Route: 048
     Dates: start: 20170919
  15. COSENTYX [Concomitant]
     Active Substance: SECUKINUMAB
  16. HALDOL [Concomitant]
     Active Substance: HALOPERIDOL
  17. OMEPRAZOLE. [Concomitant]
     Active Substance: OMEPRAZOLE

REACTIONS (1)
  - Nausea [None]

NARRATIVE: CASE EVENT DATE: 20201224
